FAERS Safety Report 9956222 (Version 1)
Quarter: 2014Q1

REPORT INFORMATION
  Report Type: Report from Study
  Country: US (occurrence: US)
  Receive Date: 20140304
  Receipt Date: 20140304
  Transmission Date: 20141002
  Serious: No
  Sender: FDA-Public Use
  Company Number: US-ABBVIE-13P-163-1084832-00

PATIENT
  Age: 56 Year
  Sex: Female

DRUGS (4)
  1. HUMIRA [Suspect]
     Indication: PSORIASIS
     Dates: start: 20130501
  2. BUPROPION [Concomitant]
     Indication: DEPRESSION
     Route: 048
  3. SPIRONOLACTONE [Concomitant]
     Indication: ACNE
     Route: 048
  4. LOSARTAN/HCTZ [Concomitant]
     Indication: HYPERTENSION
     Route: 048

REACTIONS (1)
  - Injection site pain [Recovered/Resolved]
